FAERS Safety Report 7211923-2 (Version None)
Quarter: 2011Q1

REPORT INFORMATION
  Report Type: 
  Country: None (occurrence: None)
  Receive Date: 20110106
  Receipt Date: 20101228
  Transmission Date: 20110831
  Serious: No
  Sender: FDA-Public Use
  Company Number: US-BIOGENIDEC-2011BI000104

PATIENT
  Age: 47 Year
  Sex: Female

DRUGS (1)
  1. TYSABRI [Suspect]
     Indication: MULTIPLE SCLEROSIS
     Route: 042
     Dates: start: 20080521

REACTIONS (9)
  - PAIN IN EXTREMITY [None]
  - HAIR GROWTH ABNORMAL [None]
  - NERVOUS SYSTEM DISORDER [None]
  - GAIT DISTURBANCE [None]
  - DYSPNOEA [None]
  - ARTERIAL DISORDER [None]
  - INTESTINAL FUNCTIONAL DISORDER [None]
  - FEELING HOT [None]
  - BURNING SENSATION [None]
